FAERS Safety Report 4942592-X (Version None)
Quarter: 2006Q1

REPORT INFORMATION
  Report Type: 
  Country: None (occurrence: None)
  Receive Date: 20060308
  Receipt Date: 20060221
  Transmission Date: 20060701
  Serious: Yes (Hospitalization)
  Sender: FDA-Public Use
  Company Number: 2005S1010833

PATIENT
  Age: 19 Year
  Sex: Female
  Weight: 74.8435 kg

DRUGS (6)
  1. AMITRIPTYLINE HCL [Suspect]
     Indication: INSOMNIA
     Dosage: ORAL
     Route: 048
     Dates: start: 20050101, end: 20050301
  2. PROZAC [Suspect]
     Dosage: ORAL
     Route: 048
  3. VICODIN [Suspect]
     Dosage: ORAL
     Route: 048
  4. ACETAMINOPHEN [Suspect]
     Dosage: ORAL
  5. TRAMADOL HCL [Concomitant]
  6. ETODOLAC [Concomitant]

REACTIONS (3)
  - DEPRESSION [None]
  - INTENTIONAL OVERDOSE [None]
  - SUICIDE ATTEMPT [None]
